FAERS Safety Report 20798587 (Version 1)
Quarter: 2022Q2

REPORT INFORMATION
  Report Type: Spontaneous
  Country: CN (occurrence: CN)
  Receive Date: 20220507
  Receipt Date: 20220507
  Transmission Date: 20220720
  Serious: Yes (Life-Threatening, Hospitalization, Other)
  Sender: FDA-Public Use
  Company Number: CN-MSNLABS-2022MSNLIT00441

PATIENT

DRUGS (10)
  1. PACLITAXEL [Suspect]
     Active Substance: PACLITAXEL
     Indication: Gastric cancer
     Route: 033
     Dates: start: 20210629, end: 20210615
  2. PACLITAXEL [Suspect]
     Active Substance: PACLITAXEL
     Route: 033
     Dates: start: 20210329
  3. PACLITAXEL [Suspect]
     Active Substance: PACLITAXEL
     Route: 033
     Dates: start: 20210430
  4. PACLITAXEL [Suspect]
     Active Substance: PACLITAXEL
     Route: 033
     Dates: start: 20210530
  5. GIMERACIL\OTERACIL\TEGAFUR [Suspect]
     Active Substance: GIMERACIL\OTERACIL\TEGAFUR
     Indication: Gastric cancer
     Dosage: FOR 14 DAYS, ON DAY 1 AND 8
     Route: 048
     Dates: start: 20210329
  6. GIMERACIL\OTERACIL\TEGAFUR [Suspect]
     Active Substance: GIMERACIL\OTERACIL\TEGAFUR
     Route: 048
     Dates: start: 20210430
  7. GIMERACIL\OTERACIL\TEGAFUR [Suspect]
     Active Substance: GIMERACIL\OTERACIL\TEGAFUR
     Route: 048
     Dates: start: 20210530, end: 20210615
  8. APATINIB [Suspect]
     Active Substance: APATINIB
     Indication: Gastric cancer
     Route: 048
     Dates: start: 20210329, end: 20210615
  9. CAMRELIZUMAB [Suspect]
     Active Substance: CAMRELIZUMAB
     Indication: Gastric cancer
     Route: 065
     Dates: start: 20210408, end: 20210615
  10. OXALIPLATIN [Suspect]
     Active Substance: OXALIPLATIN
     Indication: Gastric cancer
     Route: 013
     Dates: start: 20210318, end: 20210615

REACTIONS (7)
  - Gastrointestinal haemorrhage [Recovered/Resolved]
  - Bacterial infection [Recovered/Resolved]
  - Fungal infection [Recovered/Resolved]
  - Urinary incontinence [Recovered/Resolved]
  - Mouth ulceration [Recovered/Resolved]
  - Rash [Recovered/Resolved]
  - Myelosuppression [Recovered/Resolved]

NARRATIVE: CASE EVENT DATE: 20210615
